FAERS Safety Report 4693329-3 (Version None)
Quarter: 2005Q2

REPORT INFORMATION
  Report Type: 
  Country: None (occurrence: None)
  Receive Date: 20050617
  Receipt Date: 20030121
  Transmission Date: 20051028
  Serious: Yes (Life-Threatening, Hospitalization, Disabling, Other)
  Sender: FDA-Public Use
  Company Number: US-MERCK-0301USA02077

PATIENT
  Age: 59 Year
  Sex: Male
  Weight: 136 kg

DRUGS (4)
  1. VIOXX [Suspect]
     Indication: ARTHRITIS
     Route: 048
     Dates: start: 20000911, end: 20020501
  2. ASPIRIN [Concomitant]
     Indication: HEADACHE
     Route: 065
     Dates: start: 19900101
  3. PAXIL [Concomitant]
     Indication: DEPRESSION
     Route: 065
     Dates: start: 19990101
  4. VALIUM [Concomitant]
     Indication: ANXIETY
     Route: 065
     Dates: start: 19641101

REACTIONS (42)
  - ARRHYTHMIA [None]
  - ATHEROSCLEROSIS [None]
  - ATRIAL FIBRILLATION [None]
  - CORONARY ARTERY STENOSIS [None]
  - DEPRESSION [None]
  - DIARRHOEA [None]
  - DILATATION ATRIAL [None]
  - DIZZINESS [None]
  - DYSPHAGIA [None]
  - DYSPNOEA [None]
  - DYSPNOEA EXERTIONAL [None]
  - EJECTION FRACTION DECREASED [None]
  - EMOTIONAL DISTRESS [None]
  - FATIGUE [None]
  - FLUSHING [None]
  - GUILLAIN-BARRE SYNDROME [None]
  - HEART RATE IRREGULAR [None]
  - HOT FLUSH [None]
  - HYPERCHOLESTEROLAEMIA [None]
  - HYPERHIDROSIS [None]
  - HYPERLIPIDAEMIA [None]
  - HYPOAESTHESIA [None]
  - MEMORY IMPAIRMENT [None]
  - MYOCARDIAL INFARCTION [None]
  - MYOCARDIAL ISCHAEMIA [None]
  - NEGATIVE THOUGHTS [None]
  - NON-CARDIAC CHEST PAIN [None]
  - OBESITY [None]
  - PAIN IN EXTREMITY [None]
  - PANIC ATTACK [None]
  - PARALYSIS [None]
  - PNEUMONIA [None]
  - PYREXIA [None]
  - RENAL FAILURE [None]
  - RENAL FAILURE ACUTE [None]
  - SEXUAL DYSFUNCTION [None]
  - SHOULDER PAIN [None]
  - SLEEP APNOEA SYNDROME [None]
  - SLEEP DISORDER [None]
  - SUICIDAL IDEATION [None]
  - VENTRICULAR HYPERTROPHY [None]
  - VENTRICULAR HYPOKINESIA [None]
